FAERS Safety Report 9015818 (Version 2)
Quarter: 2013Q1

REPORT INFORMATION
  Report Type: Spontaneous
  Country: US (occurrence: US)
  Receive Date: 20130116
  Receipt Date: 20130206
  Transmission Date: 20140127
  Serious: Yes (Hospitalization, Other)
  Sender: FDA-Public Use
  Company Number: PHEH2013US001116

PATIENT
  Age: 37 Year
  Sex: Female
  Weight: 83.9 kg

DRUGS (8)
  1. GILENYA [Suspect]
     Indication: RELAPSING-REMITTING MULTIPLE SCLEROSIS
     Dosage: 0.5 MG, QD
     Route: 048
     Dates: start: 20120530
  2. ETODOLAC [Concomitant]
     Indication: INFLAMMATION
     Dosage: 500 MG, BID (PRN)
     Route: 048
  3. XANAX [Concomitant]
     Indication: ANXIETY
     Dosage: 0-1 MG, TID (PRN)
     Route: 048
  4. CYMBALTA [Concomitant]
     Indication: DEPRESSION
     Dosage: 60 MG, QD
     Route: 048
  5. ROBAXIN [Concomitant]
     Indication: MUSCLE SPASTICITY
     Dosage: 750 MG, QID (PRN)
     Route: 048
  6. REMERON [Concomitant]
     Indication: RESTLESS LEGS SYNDROME
     Dosage: 80 MG, QHS
     Route: 048
  7. VIT D [Concomitant]
     Indication: VITAMIN D DEFICIENCY
     Dosage: 12000 IU, QD
     Route: 048
  8. NEURONTIN [Concomitant]
     Indication: PAIN
     Dosage: 1000 MG, TID
     Route: 048

REACTIONS (8)
  - Concussion [Unknown]
  - Memory impairment [Not Recovered/Not Resolved]
  - Feeling abnormal [Unknown]
  - Hypoaesthesia [Unknown]
  - Nausea [Unknown]
  - Vision blurred [Unknown]
  - Dizziness [Unknown]
  - Road traffic accident [Not Recovered/Not Resolved]
